FAERS Safety Report 25454222 (Version 1)
Quarter: 2025Q2

REPORT INFORMATION
  Report Type: Spontaneous
  Country: US (occurrence: US)
  Receive Date: 20250619
  Receipt Date: 20250619
  Transmission Date: 20250717
  Serious: No
  Sender: CSL BEHRING
  Company Number: US-BEH-2025209446

PATIENT
  Age: 54 Year
  Sex: Female

DRUGS (7)
  1. HIZENTRA [Suspect]
     Active Substance: HUMAN IMMUNOGLOBULIN G
     Indication: Chronic inflammatory demyelinating polyradiculoneuropathy
     Route: 058
     Dates: start: 202308
  2. HIZENTRA [Suspect]
     Active Substance: HUMAN IMMUNOGLOBULIN G
     Route: 058
     Dates: start: 202308
  3. HIZENTRA [Suspect]
     Active Substance: HUMAN IMMUNOGLOBULIN G
     Route: 058
     Dates: start: 202308
  4. HIZENTRA [Suspect]
     Active Substance: HUMAN IMMUNOGLOBULIN G
     Route: 065
     Dates: start: 20250605
  5. HIZENTRA [Concomitant]
     Active Substance: HUMAN IMMUNOGLOBULIN G
     Route: 065
  6. HIZENTRA [Concomitant]
     Active Substance: HUMAN IMMUNOGLOBULIN G
     Route: 065
  7. HIZENTRA [Concomitant]
     Active Substance: HUMAN IMMUNOGLOBULIN G
     Route: 065

REACTIONS (2)
  - Headache [Unknown]
  - Pyrexia [Recovered/Resolved]

NARRATIVE: CASE EVENT DATE: 20250605
